FAERS Safety Report 4956215-7 (Version None)
Quarter: 2006Q1

REPORT INFORMATION
  Report Type: 
  Country: None (occurrence: None)
  Receive Date: 20060329
  Receipt Date: 20060320
  Transmission Date: 20060701
  Serious: Yes (Death, Life-Threatening, Hospitalization, Other)
  Sender: FDA-Public Use
  Company Number: GB-JNJFOC-20060305522

PATIENT
  Sex: Female

DRUGS (9)
  1. REMICADE [Suspect]
     Indication: ANKYLOSING SPONDYLITIS
     Route: 042
  2. B12 [Concomitant]
     Route: 065
  3. AMITRIPTYLINE [Concomitant]
     Route: 065
  4. ATENOLOL [Concomitant]
     Route: 065
  5. BUPRENORPHINE HCL [Concomitant]
     Route: 065
  6. CALCICHEW D3 FORTE [Concomitant]
     Route: 065
  7. ACETAMINOPHEN [Concomitant]
     Route: 065
  8. THYROXINE [Concomitant]
     Route: 065
  9. LOPERAMIDE [Concomitant]
     Route: 065

REACTIONS (1)
  - DEATH [None]
